FAERS Safety Report 21444345 (Version 1)
Quarter: 2022Q4

REPORT INFORMATION
  Report Type: Spontaneous
  Country: BR (occurrence: BR)
  Receive Date: 20221012
  Receipt Date: 20221012
  Transmission Date: 20230113
  Serious: Yes (Other)
  Sender: FDA-Public Use
  Company Number: BR-CELLTRION INC.-2022BR016325

PATIENT

DRUGS (2)
  1. INFLIXIMAB [Suspect]
     Active Substance: INFLIXIMAB
     Indication: Colitis
     Dosage: IN THE FIRST INFUSION USED 6 AMPOULE AFTER 1 MONTH, USED 3 AMPOULE AND AGAIN 3 AMPOULE IN THE FOLLOW
     Route: 042
  2. AZATHIOPRINE [Concomitant]
     Active Substance: AZATHIOPRINE
     Indication: Colitis
     Dosage: TWO CAPSULES PER DAY (THERAPY START DATE: THREE MONTHS AGO)
     Route: 048

REACTIONS (5)
  - Haemorrhage [Unknown]
  - Diarrhoea [Unknown]
  - Anaemia [Unknown]
  - Therapy non-responder [Not Recovered/Not Resolved]
  - Off label use [Unknown]
